FAERS Safety Report 19926843 (Version 1)
Quarter: 2021Q4

REPORT INFORMATION
  Report Type: Spontaneous
  Country: FI (occurrence: FI)
  Receive Date: 20211007
  Receipt Date: 20211007
  Transmission Date: 20220303
  Serious: Yes (Disabling)
  Sender: FDA-Public Use
  Company Number: None

PATIENT
  Age: 32 Year
  Sex: Female

DRUGS (1)
  1. HYDROCORTISONE [Suspect]
     Active Substance: HYDROCORTISONE
     Indication: Dermatitis atopic
     Route: 061
     Dates: start: 20160101, end: 20210602

REACTIONS (3)
  - Drug ineffective [Recovering/Resolving]
  - Withdrawal syndrome [Recovering/Resolving]
  - Dermatitis atopic [Recovering/Resolving]
